FAERS Safety Report 16913100 (Version 1)
Quarter: 2019Q4

REPORT INFORMATION
  Report Type: Spontaneous
  Country: ES (occurrence: ES)
  Receive Date: 20191014
  Receipt Date: 20191014
  Transmission Date: 20200122
  Serious: Yes (Hospitalization)
  Sender: FDA-Public Use
  Company Number: ES-TEVA-2019-ES-1119950

PATIENT
  Age: 59 Year
  Sex: Male
  Weight: 93 kg

DRUGS (3)
  1. OXALIPLATINO TEVA 5 MG/ML CONCENTRADO PARA SOLUCION PARA PERFUSION EFG [Suspect]
     Active Substance: OXALIPLATIN
     Indication: COLON NEOPLASM
     Route: 042
     Dates: start: 20180504, end: 20180525
  2. AVASTIN 25 MG / ML CONCENTRATE FOR PERFUSION SOLUTION, 1 VIAL OF 16 ML [Concomitant]
     Indication: COLON NEOPLASM
     Route: 042
     Dates: start: 20180504
  3. XELODA 500 MG TABLETS COVERED WITH FILM, 120 TABLETS [Concomitant]
     Indication: COLON NEOPLASM
     Route: 042
     Dates: start: 20180504

REACTIONS (4)
  - Feeling cold [Recovered/Resolved]
  - Cyanosis [Recovered/Resolved]
  - Back pain [Recovered/Resolved]
  - Hypertension [Recovered/Resolved]

NARRATIVE: CASE EVENT DATE: 20180525
